FAERS Safety Report 12922122 (Version 3)
Quarter: 2016Q4

REPORT INFORMATION
  Report Type: Report from Study
  Country: None (occurrence: IL)
  Receive Date: 20161108
  Receipt Date: 20161222
  Transmission Date: 20170207
  Serious: Yes (Hospitalization)
  Sender: FDA-Public Use
  Company Number: IL-ABBVIE-16K-082-1770998-00

PATIENT
  Sex: Male

DRUGS (1)
  1. HUMIRA [Suspect]
     Active Substance: ADALIMUMAB
     Indication: CROHN^S DISEASE
     Route: 058

REACTIONS (10)
  - Urine abnormality [Not Recovered/Not Resolved]
  - Genital pain [Not Recovered/Not Resolved]
  - Crystal urine present [Not Recovered/Not Resolved]
  - Abscess [Unknown]
  - Back pain [Unknown]
  - Drug administered at inappropriate site [Unknown]
  - Faecaluria [Unknown]
  - Fistula [Unknown]
  - Back pain [Recovered/Resolved]
  - Pyrexia [Recovering/Resolving]

NARRATIVE: CASE EVENT DATE: 2016
